FAERS Safety Report 17763840 (Version 1)
Quarter: 2020Q2

REPORT INFORMATION
  Report Type: Spontaneous
  Country: US (occurrence: US)
  Receive Date: 20200510
  Receipt Date: 20200510
  Transmission Date: 20200714
  Serious: No
  Sender: FDA-Public Use
  Company Number: US-009507513-2005USA001350

PATIENT
  Sex: Female

DRUGS (1)
  1. NEXPLANON [Suspect]
     Active Substance: ETONOGESTREL
     Dosage: DOSE/FREQUENCY: 3 YEARS
     Route: 059

REACTIONS (1)
  - Incorrect product administration duration [Unknown]

NARRATIVE: CASE EVENT DATE: 20200415
